FAERS Safety Report 9775473 (Version 1)
Quarter: 2013Q4

REPORT INFORMATION
  Report Type: Spontaneous
  Country: US (occurrence: US)
  Receive Date: 20131220
  Receipt Date: 20131220
  Transmission Date: 20140711
  Serious: No
  Sender: FDA-Public Use
  Company Number: US-GALDERMA-US13003498

PATIENT
  Age: 59 Year
  Sex: Female

DRUGS (5)
  1. MIRVASO [Suspect]
     Indication: ROSACEA
     Dosage: 0.33%
     Route: 061
     Dates: start: 20131019, end: 20131024
  2. MIRVASO [Suspect]
     Dosage: 0.33%
     Route: 061
     Dates: start: 20131105
  3. UNKOWN BABY WIPES [Concomitant]
     Indication: THERAPEUTIC SKIN CARE TOPICAL
     Route: 061
  4. BANANA BOAT SPORT PERFORMANCE SUNSCREEN SPF 30 [Concomitant]
     Indication: PROPHYLAXIS AGAINST SOLAR RADIATION
     Route: 061
     Dates: end: 201310
  5. COVER GIRL BLUSH [Concomitant]
     Route: 061

REACTIONS (2)
  - Condition aggravated [Recovered/Resolved]
  - Erythema [Recovered/Resolved]
